FAERS Safety Report 5377570-2 (Version None)
Quarter: 2007Q3

REPORT INFORMATION
  Report Type: 
  Country: None (occurrence: None)
  Receive Date: 20070703
  Receipt Date: 20070626
  Transmission Date: 20080115
  Serious: Yes (Other)
  Sender: FDA-Public Use
  Company Number: US-SHR-US-2007-013469

PATIENT
  Age: 31 Year
  Sex: Female
  Weight: 72.6 kg

DRUGS (4)
  1. MIRENA [Suspect]
     Indication: CONTRACEPTION
     Dosage: 20 A?G/DAY, CONT
     Route: 015
     Dates: start: 20060101
  2. XANAX - SLOW RELEASE [Concomitant]
     Indication: ANXIETY
     Dosage: 2 MG, 2X/DAY
     Route: 048
     Dates: start: 20061201
  3. ZOLOFT [Concomitant]
     Indication: DEPRESSION
     Dosage: 250 MG, 1X/DAY
     Route: 048
     Dates: start: 20061201
  4. AMBIEN CR [Concomitant]
     Indication: SLEEP DISORDER
     Dosage: UNK, AS REQ'D
     Dates: start: 20070101

REACTIONS (5)
  - DEEP VEIN THROMBOSIS [None]
  - PAIN [None]
  - POST PROCEDURAL HAEMATOMA [None]
  - RASH [None]
  - WEIGHT INCREASED [None]
